FAERS Safety Report 23571774 (Version 1)
Quarter: 2024Q1

REPORT INFORMATION
  Report Type: Spontaneous
  Country: US (occurrence: None)
  Receive Date: 20240227
  Receipt Date: 20240227
  Transmission Date: 20240410
  Serious: Yes (Other)
  Sender: FDA-Public Use
  Company Number: None

PATIENT
  Age: 14 Year
  Sex: Female
  Weight: 30.6 kg

DRUGS (1)
  1. TAMIFLU [Suspect]
     Active Substance: OSELTAMIVIR PHOSPHATE
     Indication: Influenza
     Dosage: FREQUENCY : DAILY;?
     Route: 048
     Dates: start: 20240221, end: 20240224

REACTIONS (2)
  - Abnormal behaviour [None]
  - Communication disorder [None]

NARRATIVE: CASE EVENT DATE: 20240224
